FAERS Safety Report 11712150 (Version 1)
Quarter: 2015Q4

REPORT INFORMATION
  Report Type: Spontaneous
  Country: US (occurrence: US)
  Receive Date: 20151104
  Receipt Date: 20151104
  Transmission Date: 20160304
  Serious: No
  Sender: FDA-Public Use
  Company Number: US-ELI_LILLY_AND_COMPANY-US201107000719

PATIENT
  Age: 84 Year
  Sex: Female

DRUGS (2)
  1. FORTEO [Suspect]
     Active Substance: TERIPARATIDE
     Indication: OSTEOPOROSIS
     Dosage: 20 UG, QD
     Dates: start: 20110430
  2. FORTEO [Suspect]
     Active Substance: TERIPARATIDE
     Dosage: 20 UG, QD

REACTIONS (12)
  - Back injury [Unknown]
  - Back pain [Unknown]
  - Hypertension [Unknown]
  - Fall [Unknown]
  - Dizziness [Unknown]
  - Limb discomfort [Unknown]
  - Dizziness [Unknown]
  - Joint injury [Unknown]
  - Injection site bruising [Unknown]
  - Muscle spasms [Unknown]
  - Pain [Unknown]
  - Fall [Unknown]

NARRATIVE: CASE EVENT DATE: 20110604
